FAERS Safety Report 20417043 (Version 2)
Quarter: 2022Q1

REPORT INFORMATION
  Report Type: Spontaneous
  Country: US (occurrence: US)
  Receive Date: 20220202
  Receipt Date: 20220310
  Transmission Date: 20220424
  Serious: Yes (Other)
  Sender: FDA-Public Use
  Company Number: US-PFIZER INC-2021339291

PATIENT
  Age: 46 Year
  Sex: Female

DRUGS (16)
  1. RAPAMUNE [Suspect]
     Active Substance: SIROLIMUS
     Dosage: 4 MG, 1X/DAY (4 TABS ONCE A DAY)
     Route: 048
  2. RAPAMUNE [Suspect]
     Active Substance: SIROLIMUS
     Dosage: 2X/DAY (I TAKE IT 4, TWICE A DAY/1 MG, 90-DAY SUPPLY, 4 ORAL ONCE A DAY, QUANTITY 360)
  3. ALBUTEROL SULFATE [Concomitant]
     Active Substance: ALBUTEROL SULFATE
  4. XANAX [Concomitant]
     Active Substance: ALPRAZOLAM
     Dosage: 0.5 MG, AS NEEDED
  5. BUSPIRONE [Concomitant]
     Active Substance: BUSPIRONE HYDROCHLORIDE
     Indication: Anxiety
     Dosage: UNK, 2X/DAY
  6. FIORICET [Concomitant]
     Active Substance: ACETAMINOPHEN\BUTALBITAL\CAFFEINE
     Indication: Migraine
     Dosage: UNK(325 MG - 40MG)
  7. CALCITRIOL [Concomitant]
     Active Substance: CALCITRIOL
     Dosage: 1 UG, 1X/DAY(ONCE A DAY)
     Route: 048
  8. DILTIZEM [Concomitant]
     Indication: Chest pain
     Dosage: 350 MG, UNK
  9. CHOLECALCIFEROL [Concomitant]
     Active Substance: CHOLECALCIFEROL
  10. LEXAPRO [Concomitant]
     Active Substance: ESCITALOPRAM OXALATE
     Dosage: 20 MG, 1X/DAY(ONCE A DAY)
  11. MORPHINE [Concomitant]
     Active Substance: MORPHINE
     Dosage: UNK  2X/DAY (TWICE A DAY)
  12. MYCOPHENOLIC ACID [Concomitant]
     Active Substance: MYCOPHENOLIC ACID
  13. OMEPRAZOLE [Concomitant]
     Active Substance: OMEPRAZOLE
     Dosage: 40 MG, 2X/DAY (TWICE A DAY)
  14. ZOFRAN [Concomitant]
     Active Substance: ONDANSETRON HYDROCHLORIDE
     Indication: Nausea
  15. PRAVASTATIN [Concomitant]
     Active Substance: PRAVASTATIN
     Dosage: 20 MG, 1X/DAY(ONCE DAILY   )
  16. QUETIAPINE [Concomitant]
     Active Substance: QUETIAPINE
     Dosage: 100 MG

REACTIONS (4)
  - Renal failure [Unknown]
  - Product dose omission issue [Unknown]
  - Off label use [Unknown]
  - Illness [Unknown]
